FAERS Safety Report 17632555 (Version 1)
Quarter: 2020Q2

REPORT INFORMATION
  Report Type: Spontaneous
  Country: FR (occurrence: FR)
  Receive Date: 20200406
  Receipt Date: 20200406
  Transmission Date: 20200713
  Serious: Yes (Hospitalization)
  Sender: FDA-Public Use
  Company Number: FR-JNJFOC-20200405745

PATIENT
  Age: 90 Year
  Sex: Male
  Weight: 73 kg

DRUGS (8)
  1. PERINDOPRIL [Concomitant]
     Active Substance: PERINDOPRIL
  2. LANSOYL [Concomitant]
     Active Substance: MINERAL OIL
  3. SERESTA [Concomitant]
     Active Substance: OXAZEPAM
  4. SPECIAFOLDINE [Concomitant]
     Active Substance: FOLIC ACID
  5. RISPERDAL [Suspect]
     Active Substance: RISPERIDONE
     Indication: PRODUCT USED FOR UNKNOWN INDICATION
     Route: 048
     Dates: start: 2019
  6. KARDEGIC [Concomitant]
     Active Substance: ASPIRIN DL-LYSINE
  7. PARACETAMOL [Concomitant]
     Active Substance: ACETAMINOPHEN
  8. PAROXETINE. [Concomitant]
     Active Substance: PAROXETINE

REACTIONS (3)
  - Dysphagia [Recovering/Resolving]
  - Faecaloma [Recovered/Resolved]
  - Lung disorder [Recovering/Resolving]

NARRATIVE: CASE EVENT DATE: 201911
